FAERS Safety Report 14289153 (Version 2)
Quarter: 2017Q4

REPORT INFORMATION
  Report Type: Spontaneous
  Country: JP (occurrence: JP)
  Receive Date: 20171214
  Receipt Date: 20171221
  Transmission Date: 20180321
  Serious: Yes (Other)
  Sender: FDA-Public Use
  Company Number: JP-ELI_LILLY_AND_COMPANY-JP201712005717

PATIENT
  Age: 63 Year
  Sex: Male
  Weight: 57 kg

DRUGS (3)
  1. CPT-11 [Suspect]
     Active Substance: IRINOTECAN
     Indication: COLORECTAL CARCINOMA STAGE 0
     Dosage: UNK UNK, UNKNOWN
     Route: 065
     Dates: start: 20160728, end: 20170817
  2. ERBITUX [Suspect]
     Active Substance: CETUXIMAB
     Indication: COLORECTAL CARCINOMA STAGE 0
     Dosage: UNK UNK, UNKNOWN
     Route: 041
     Dates: start: 20160728, end: 20170817
  3. TS-1 [Suspect]
     Active Substance: GIMERACIL\OTERACIL\TEGAFUR
     Indication: COLORECTAL CARCINOMA STAGE 0
     Dosage: UNK, UNKNOWN
     Route: 065

REACTIONS (1)
  - Disease progression [Unknown]

NARRATIVE: CASE EVENT DATE: 20170927
